FAERS Safety Report 9063215 (Version 1)
Quarter: 2013Q1

REPORT INFORMATION
  Report Type: Spontaneous
  Country: US (occurrence: US)
  Receive Date: 20130213
  Receipt Date: 20130213
  Transmission Date: 20140127
  Serious: Yes (Hospitalization)
  Sender: FDA-Public Use
  Company Number: US-GLAXOSMITHKLINE-A0996443A

PATIENT
  Age: 60 Year
  Sex: Female

DRUGS (1)
  1. AVANDIA [Suspect]
     Indication: DIABETES MELLITUS
     Dosage: 2MG UNKNOWN
     Route: 048
     Dates: start: 20020908

REACTIONS (5)
  - Cardiac failure congestive [Not Recovered/Not Resolved]
  - Blindness [Unknown]
  - Gait disturbance [Unknown]
  - Oxygen supplementation [Unknown]
  - Incontinence [Unknown]
